FAERS Safety Report 8507361-2 (Version None)
Quarter: 2012Q3

REPORT INFORMATION
  Report Type: 
  Country: None (occurrence: None)
  Receive Date: 20120712
  Receipt Date: 20120706
  Transmission Date: 20120928
  Serious: Yes (Hospitalization)
  Sender: FDA-Public Use
  Company Number: TR-ABBOTT-12P-161-0953479-00

PATIENT
  Age: 25 Year
  Sex: Male

DRUGS (1)
  1. KALETRA [Suspect]
     Indication: HIV INFECTION
     Dosage: 200/50 MG X 1 DAILY
     Route: 048
     Dates: start: 20080101

REACTIONS (3)
  - HALLUCINATION [None]
  - MENTAL DISORDER [None]
  - SUICIDE ATTEMPT [None]
